FAERS Safety Report 18517468 (Version 2)
Quarter: 2020Q4

REPORT INFORMATION
  Report Type: Spontaneous
  Country: US (occurrence: US)
  Receive Date: 20201118
  Receipt Date: 20201127
  Transmission Date: 20210114
  Serious: Yes (Hospitalization)
  Sender: FDA-Public Use
  Company Number: US-PFIZER INC-2020454158

PATIENT
  Age: 64 Year
  Sex: Male
  Weight: 81.65 kg

DRUGS (3)
  1. PHENYTOIN. [Suspect]
     Active Substance: PHENYTOIN
     Indication: EPILEPSY
     Dosage: 100 MG, 4X/DAY
  2. VALPROATE SEMISODIUM [Suspect]
     Active Substance: DIVALPROEX SODIUM
     Dosage: 2500 MG, DAILY, (500MG, FIVE TIMES A DAY (3-500MG IN THE MORNING, AND 2-500MG AT NIGHT))
  3. CARBAMAZEPINE. [Suspect]
     Active Substance: CARBAMAZEPINE
     Dosage: 900 MG, DAILY (2-300MG IN THE MORNING AND 1-300MG AT NIGHT)

REACTIONS (3)
  - Electroencephalogram abnormal [Unknown]
  - Seizure [Unknown]
  - Body height decreased [Unknown]
